FAERS Safety Report 6413164-5 (Version None)
Quarter: 2009Q4

REPORT INFORMATION
  Report Type: 
  Country: None (occurrence: None)
  Receive Date: 20091026
  Receipt Date: 20091013
  Transmission Date: 20100525
  Serious: Yes (Other)
  Sender: FDA-Public Use
  Company Number: US-JNJFOC-20090706292

PATIENT
  Age: 33 Year
  Sex: Female

DRUGS (3)
  1. ACETAMINOPHEN [Suspect]
     Route: 048
  2. ACETAMINOPHEN [Suspect]
     Indication: SUICIDE ATTEMPT
     Route: 048
  3. BENADRYL [Suspect]
     Indication: SUICIDE ATTEMPT
     Route: 048

REACTIONS (5)
  - AGITATION [None]
  - INTENTIONAL OVERDOSE [None]
  - LETHARGY [None]
  - SOMNOLENCE [None]
  - TREMOR [None]
